FAERS Safety Report 15462230 (Version 1)
Quarter: 2018Q4

REPORT INFORMATION
  Report Type: Spontaneous
  Country: US (occurrence: US)
  Receive Date: 20181003
  Receipt Date: 20181003
  Transmission Date: 20190204
  Serious: No
  Sender: FDA-Public Use
  Company Number: US-009507513-1809USA003116

PATIENT
  Age: 63 Year
  Sex: Female

DRUGS (1)
  1. KEYTRUDA [Suspect]
     Active Substance: PEMBROLIZUMAB
     Dosage: ^264 MG^ AT AN UNKNOWN FREQUENCY
     Route: 042

REACTIONS (2)
  - Blood creatinine increased [Unknown]
  - Product administration interrupted [Unknown]
